FAERS Safety Report 7474072-4 (Version None)
Quarter: 2011Q2

REPORT INFORMATION
  Report Type: 
  Country: None (occurrence: None)
  Receive Date: 20110511
  Receipt Date: 20110427
  Transmission Date: 20111010
  Serious: Yes (Death)
  Sender: FDA-Public Use
  Company Number: DE-WATSON-2011-06286

PATIENT
  Age: 58 Year
  Sex: Female

DRUGS (3)
  1. DOXYLAMINE SUCCINATE [Suspect]
     Indication: PRODUCT USED FOR UNKNOWN INDICATION
     Dosage: UNK
     Route: 048
  2. ALCOHOL [Suspect]
     Indication: PRODUCT USED FOR UNKNOWN INDICATION
     Dosage: UNK
     Route: 048
  3. TEMAZEPAM [Suspect]
     Indication: INSOMNIA
     Dosage: UNK
     Route: 048

REACTIONS (1)
  - POISONING [None]
